FAERS Safety Report 8366091-0 (Version None)
Quarter: 2012Q2

REPORT INFORMATION
  Report Type: 
  Country: None (occurrence: None)
  Receive Date: 20120516
  Receipt Date: 20120516
  Transmission Date: 20120825
  Serious: No
  Sender: FDA-Public Use
  Company Number: None

PATIENT
  Age: 70 Year
  Sex: Female
  Weight: 90.7194 kg

DRUGS (2)
  1. ACTOS [Suspect]
     Indication: BLOOD GLUCOSE ABNORMAL
     Dosage: 30 MG DAILY 1 ORAL
     Route: 048
     Dates: start: 20070101, end: 20120301
  2. ACTOS [Suspect]
     Indication: DIABETES MELLITUS
     Dosage: 30 MG DAILY 1 ORAL
     Route: 048
     Dates: start: 20070101, end: 20120301

REACTIONS (2)
  - MACULAR OEDEMA [None]
  - RETINAL OEDEMA [None]
